FAERS Safety Report 13673154 (Version 1)
Quarter: 2017Q2

REPORT INFORMATION
  Report Type: Spontaneous
  Country: FR (occurrence: FR)
  Receive Date: 20170621
  Receipt Date: 20170621
  Transmission Date: 20170830
  Serious: Yes (Life-Threatening, Hospitalization)
  Sender: FDA-Public Use
  Company Number: FR-ELI_LILLY_AND_COMPANY-FR201706007171

PATIENT
  Age: 63 Year
  Sex: Female

DRUGS (8)
  1. TERCIAN                            /00759301/ [Suspect]
     Active Substance: CYAMEMAZINE
     Indication: SCHIZOPHRENIA
     Dosage: UNK UNK, OTHER
     Route: 048
     Dates: end: 20161121
  2. CLOPIXOL                           /00876702/ [Suspect]
     Active Substance: ZUCLOPENTHIXOL ACETATE
     Indication: SCHIZOPHRENIA
     Dosage: 50 MG, TID
     Route: 048
     Dates: start: 20161118, end: 20161121
  3. XEROQUEL [Suspect]
     Active Substance: QUETIAPINE FUMARATE
     Indication: SCHIZOPHRENIA
     Dosage: 3 DF, EACH EVENING
     Route: 048
     Dates: end: 20161121
  4. NOZINAN                            /00038601/ [Suspect]
     Active Substance: LEVOMEPROMAZINE
     Indication: SCHIZOPHRENIA
     Dosage: 100 DF, TID
     Route: 048
     Dates: start: 20161118, end: 20161121
  5. URBANYL [Concomitant]
     Active Substance: CLOBAZAM
     Indication: AGITATION
     Dosage: 20 MG, TID
     Route: 048
     Dates: start: 20161118
  6. LEVOTHYROX [Concomitant]
     Active Substance: LEVOTHYROXINE
     Indication: HYPOTHYROIDISM
     Dosage: 75 UG, DAILY
     Route: 048
  7. PAROXETINE. [Concomitant]
     Active Substance: PAROXETINE
     Indication: DEPRESSION
     Dosage: 10 MG, DAILY
     Route: 048
  8. ZYPREXA [Suspect]
     Active Substance: OLANZAPINE
     Indication: SCHIZOPHRENIA
     Dosage: 10 MG, TID
     Route: 048
     Dates: start: 20161118, end: 20161121

REACTIONS (5)
  - Acute respiratory failure [Recovered/Resolved]
  - Subileus [Recovered/Resolved]
  - Pneumonia aspiration [Recovered/Resolved]
  - Hypotension [Unknown]
  - Tachycardia [Unknown]

NARRATIVE: CASE EVENT DATE: 20161119
